FAERS Safety Report 23159717 (Version 2)
Quarter: 2023Q4

REPORT INFORMATION
  Report Type: Spontaneous
  Country: BR (occurrence: BR)
  Receive Date: 20231108
  Receipt Date: 20231117
  Transmission Date: 20240110
  Serious: Yes (Death, Other)
  Sender: FDA-Public Use
  Company Number: BR-009507513-2311BRA002371

PATIENT
  Age: 90 Year
  Sex: Female

DRUGS (1)
  1. KEYTRUDA [Suspect]
     Active Substance: PEMBROLIZUMAB
     Dosage: 400 MG EVERY 6 WEEKS
     Dates: start: 20210422, end: 20210422

REACTIONS (3)
  - Urosepsis [Fatal]
  - Nephropathy toxic [Unknown]
  - Renal impairment [Unknown]
